FAERS Safety Report 19816130 (Version 1)
Quarter: 2021Q3

REPORT INFORMATION
  Report Type: Spontaneous
  Country: GB (occurrence: GB)
  Receive Date: 20210910
  Receipt Date: 20210910
  Transmission Date: 20211014
  Serious: Yes (Hospitalization)
  Sender: FDA-Public Use
  Company Number: NVSC2021GB200676

PATIENT
  Age: 7 Year
  Sex: Female

DRUGS (18)
  1. PARACETAMOL [Concomitant]
     Active Substance: ACETAMINOPHEN
     Dosage: 295 MG, QID (PRN)
     Route: 048
     Dates: start: 20210715
  2. MIDAZOLAM. [Concomitant]
     Active Substance: MIDAZOLAM
     Indication: AGITATION
  3. MIDAZOLAM. [Concomitant]
     Active Substance: MIDAZOLAM
     Indication: DYSPNOEA
     Dosage: 0.2 ML AS REQUIRED
     Dates: start: 20210714
  4. DEXAMETHASONE. [Concomitant]
     Active Substance: DEXAMETHASONE
     Indication: PROPHYLAXIS OF NAUSEA AND VOMITING
     Dosage: 4 MG, BID
     Route: 048
     Dates: start: 20210715
  5. CYCLOPHOSPHAMIDE. [Suspect]
     Active Substance: CYCLOPHOSPHAMIDE
     Indication: REFRACTORY CANCER
     Dosage: 196 MG/M2 (UP TO 5 DAYS (EACH 21 DAY CYCLE)
     Route: 042
     Dates: start: 20210715
  6. TOPOTECAN HYDROCHLORIDE. [Suspect]
     Active Substance: TOPOTECAN HYDROCHLORIDE
     Indication: REFRACTORY CANCER
     Dosage: 0.59 MG/M2 (UPTO 5 DAYS EACH 21 DAY CYCLE)
     Route: 042
     Dates: start: 20210715
  7. VENETOCLAX. [Suspect]
     Active Substance: VENETOCLAX
     Dosage: 250 MG, QD
     Route: 048
     Dates: start: 20210716
  8. OXYCONTIN [Concomitant]
     Active Substance: OXYCODONE HYDROCHLORIDE
     Indication: PAIN PROPHYLAXIS
     Dosage: 20 MG (10 MG 2 IN 1 DAY), 10 MG, BID
     Route: 048
     Dates: start: 20210714
  9. PREGABALIN. [Concomitant]
     Active Substance: PREGABALIN
     Indication: PAIN PROPHYLAXIS
     Dosage: 60 MG, BID
     Route: 048
     Dates: start: 20210701
  10. KETAMINE [Concomitant]
     Active Substance: KETAMINE
     Indication: PAIN PROPHYLAXIS
     Dosage: 2 MG, BID
     Route: 048
     Dates: start: 20210714
  11. METOCLOPRAMIDE. [Concomitant]
     Active Substance: METOCLOPRAMIDE
     Indication: PROPHYLAXIS OF NAUSEA AND VOMITING
     Dosage: 2 MG, TID
     Route: 048
     Dates: start: 20210715
  12. VENETOCLAX. [Suspect]
     Active Substance: VENETOCLAX
     Indication: REFRACTORY CANCER
     Dosage: 120 MG, QD
     Route: 048
     Dates: start: 20210715, end: 20210715
  13. ONDASETRON [Concomitant]
     Active Substance: ONDANSETRON
     Indication: VOMITING
     Dosage: 4 MG, TID(PRN)
     Route: 065
     Dates: start: 20210716
  14. PARACETAMOL [Concomitant]
     Active Substance: ACETAMINOPHEN
     Dosage: 195 MG, QID (PRN)
     Route: 042
     Dates: start: 20210715
  15. COTRIMOXAZOLE [Concomitant]
     Active Substance: SULFAMETHOXAZOLE\TRIMETHOPRIM
     Indication: ANTIFUNGAL PROPHYLAXIS
     Dosage: 360 MG, BID
     Route: 048
     Dates: start: 20210715
  16. PARACETAMOL [Concomitant]
     Active Substance: ACETAMINOPHEN
     Indication: PAIN PROPHYLAXIS
     Dosage: 340 MG, QID (PRN)
     Route: 048
     Dates: start: 20210714
  17. METOCLOPRAMIDE. [Concomitant]
     Active Substance: METOCLOPRAMIDE
     Dosage: 2 MG, PRN
     Route: 042
     Dates: start: 20210715
  18. COTRIMOXAZOLE [Concomitant]
     Active Substance: SULFAMETHOXAZOLE\TRIMETHOPRIM
     Dosage: 360 MG, Q2W
     Route: 048
     Dates: start: 20210715

REACTIONS (4)
  - Febrile neutropenia [Recovered/Resolved]
  - Hypotension [Recovered/Resolved]
  - Pyrexia [Recovered/Resolved]
  - Tachycardia [Recovered/Resolved]

NARRATIVE: CASE EVENT DATE: 20210821
